FAERS Safety Report 21409412 (Version 1)
Quarter: 2022Q4

REPORT INFORMATION
  Report Type: Report from Study
  Country: US (occurrence: US)
  Receive Date: 20221004
  Receipt Date: 20221004
  Transmission Date: 20230113
  Serious: Yes (Hospitalization)
  Sender: FDA-Public Use
  Company Number: US-ALLERGAN-2232400US

PATIENT
  Sex: Female

DRUGS (1)
  1. DALBAVANCIN HYDROCHLORIDE [Suspect]
     Active Substance: DALBAVANCIN HYDROCHLORIDE
     Indication: Product used for unknown indication
     Dosage: 1500 MG, SINGLE

REACTIONS (3)
  - Erythema [Unknown]
  - Pain [Unknown]
  - Crying [Unknown]

NARRATIVE: CASE EVENT DATE: 20220916
